FAERS Safety Report 4843822-5 (Version None)
Quarter: 2005Q4

REPORT INFORMATION
  Report Type: 
  Country: None (occurrence: None)
  Receive Date: 20051202
  Receipt Date: 20041203
  Transmission Date: 20060501
  Serious: Yes (Other)
  Sender: FDA-Public Use
  Company Number: GB-GLAXOSMITHKLINE-B0359698A

PATIENT
  Sex: Male

DRUGS (2)
  1. SEROXAT [Suspect]
     Indication: DEPRESSION
     Route: 048
     Dates: start: 20010901
  2. PARACETAMOL [Suspect]
     Route: 048

REACTIONS (4)
  - INTENTIONAL OVERDOSE [None]
  - IRRITABILITY [None]
  - PARANOIA [None]
  - SUICIDE ATTEMPT [None]
